FAERS Safety Report 4450423-X (Version None)
Quarter: 2004Q3

REPORT INFORMATION
  Report Type: 
  Country: None (occurrence: None)
  Receive Date: 20040915
  Receipt Date: 20040909
  Transmission Date: 20050211
  Serious: Yes (Hospitalization)
  Sender: FDA-Public Use
  Company Number: 04-09-1281

PATIENT
  Age: 32 Year
  Sex: Male

DRUGS (2)
  1. PHENYTOIN SODIUM [Suspect]
     Indication: CONVULSION
     Dosage: 600 MG QD ORAL
     Route: 048
  2. PHENOBARBITAL TAB [Suspect]
     Indication: CONVULSION
     Dosage: 90 MG QD

REACTIONS (9)
  - BLOOD 1,25-DIHYDROXYCHOLECALCIFEROL INCREASED [None]
  - BLOOD 25-HYDROXYCHOLECALCIFEROL DECREASED [None]
  - BLOOD ALKALINE PHOSPHATASE INCREASED [None]
  - BLOOD CALCIUM DECREASED [None]
  - BLOOD PARATHYROID HORMONE INCREASED [None]
  - CONVULSION [None]
  - DISEASE RECURRENCE [None]
  - ELECTROENCEPHALOGRAM ABNORMAL [None]
  - TETANY [None]
